FAERS Safety Report 6739671-3 (Version None)
Quarter: 2010Q2

REPORT INFORMATION
  Report Type: 
  Country: None (occurrence: None)
  Receive Date: 20100525
  Receipt Date: 20100514
  Transmission Date: 20101027
  Serious: Yes (Hospitalization)
  Sender: FDA-Public Use
  Company Number: JP-ROCHE-703329

PATIENT
  Sex: Female
  Weight: 47.1 kg

DRUGS (8)
  1. TOCILIZUMAB [Suspect]
     Indication: RHEUMATOID ARTHRITIS
     Dosage: RESCUE THERAPY
     Route: 065
     Dates: start: 20091216
  2. OCRELIZUMAB [Suspect]
     Indication: RHEUMATOID ARTHRITIS
     Dosage: DATE OF LAST DOSE PRIOR TO SAE: 27 JULY 2009
     Route: 042
     Dates: start: 20090126
  3. METHOTREXATE [Concomitant]
     Dosage: DOSE: 8 MG/WEEK
     Dates: start: 20080902
  4. FOLIC ACID [Concomitant]
     Dosage: DOSE: 5 MG/WEEK
     Dates: start: 20081112
  5. PREDNISOLONE [Concomitant]
     Dosage: DOSE: 2.5 MG/DAY
     Dates: start: 20100415
  6. LOXOPROFEN SODIUM [Concomitant]
     Dosage: DOSE: 120 MG/DAY
     Dates: start: 20080607
  7. ALENDRONATE SODIUM [Concomitant]
     Dosage: DRUG REPORTED AS:ALENDRONATE SODIUM HYDRATE DOSE: 35 MG/WEEK
     Dates: start: 20080604
  8. LANSOPRAZOLE [Concomitant]
     Dosage: DOSE: 15 MG/DAY
     Dates: start: 20100302

REACTIONS (1)
  - DEEP VEIN THROMBOSIS [None]
